FAERS Safety Report 4325729-5 (Version None)
Quarter: 2004Q1

REPORT INFORMATION
  Report Type: 
  Country: None (occurrence: None)
  Receive Date: 20040324
  Receipt Date: 20040305
  Transmission Date: 20041129
  Serious: Yes (Other)
  Sender: FDA-Public Use
  Company Number: USA040361088

PATIENT
  Age: 5 Year
  Sex: Male
  Weight: 18 kg

DRUGS (3)
  1. STRATTERA [Suspect]
     Dosage: 25 MG DAY
     Dates: start: 20030901
  2. TOPAMAX [Concomitant]
  3. TRILEPTAL [Concomitant]

REACTIONS (2)
  - PETIT MAL EPILEPSY [None]
  - SOMNOLENCE [None]
